FAERS Safety Report 5066934-2 (Version None)
Quarter: 2006Q3

REPORT INFORMATION
  Report Type: 
  Country: None (occurrence: None)
  Receive Date: 20060726
  Receipt Date: 20060710
  Transmission Date: 20061208
  Serious: Yes (Hospitalization)
  Sender: FDA-Public Use
  Company Number: 23100301

PATIENT
  Age: 80 Year
  Sex: Female

DRUGS (1)
  1. ARGATROBAN [Suspect]
     Indication: HEPARIN-INDUCED THROMBOCYTOPENIA
     Dosage: 250 ML ONCE IV
     Route: 042
     Dates: start: 20060601, end: 20060601

REACTIONS (1)
  - INCORRECT DRUG ADMINISTRATION RATE [None]
